FAERS Safety Report 14479608 (Version 8)
Quarter: 2019Q2

REPORT INFORMATION
  Report Type: Spontaneous
  Country: US (occurrence: US)
  Receive Date: 20180202
  Receipt Date: 20190529
  Transmission Date: 20190711
  Serious: Yes (Other)
  Sender: FDA-Public Use
  Company Number: US-BIOGEN-2016BI00321651

PATIENT
  Age: 49 Year
  Sex: Female

DRUGS (17)
  1. PROZAC [Concomitant]
     Active Substance: FLUOXETINE HYDROCHLORIDE
     Indication: PRODUCT USED FOR UNKNOWN INDICATION
     Route: 050
  2. TRAMADOL HCL [Concomitant]
     Active Substance: TRAMADOL HYDROCHLORIDE
     Indication: PRODUCT USED FOR UNKNOWN INDICATION
     Route: 050
  3. TYSABRI [Suspect]
     Active Substance: NATALIZUMAB
     Indication: MULTIPLE SCLEROSIS
     Route: 050
     Dates: start: 20150826
  4. AMPYRA [Concomitant]
     Active Substance: DALFAMPRIDINE
     Indication: MULTIPLE SCLEROSIS
     Route: 050
     Dates: start: 201508
  5. AMPYRA [Concomitant]
     Active Substance: DALFAMPRIDINE
     Route: 050
     Dates: start: 201508
  6. NUEDEXTA [Concomitant]
     Active Substance: DEXTROMETHORPHAN HYDROBROMIDE\QUINIDINE SULFATE
     Indication: PRODUCT USED FOR UNKNOWN INDICATION
     Route: 050
  7. AMPYRA [Concomitant]
     Active Substance: DALFAMPRIDINE
     Route: 050
     Dates: start: 20150826
  8. HYDROCO/APAP [Concomitant]
     Active Substance: ACETAMINOPHEN\HYDROCODONE
     Indication: PRODUCT USED FOR UNKNOWN INDICATION
     Route: 050
  9. VITAMIN B COMPLEX [Concomitant]
     Active Substance: CYANOCOBALAMIN\DEXPANTHENOL\NIACINAMIDE\PYRIDOXINE HYDROCHLORIDE\RIBOFLAVIN 5^-PHOSPHATE SODIUM\THIAMINE HYDROCHLORIDE\VITAMIN B COMPLEX
     Indication: PRODUCT USED FOR UNKNOWN INDICATION
     Route: 050
  10. MELOXICAM. [Concomitant]
     Active Substance: MELOXICAM
     Indication: PRODUCT USED FOR UNKNOWN INDICATION
     Route: 050
  11. ACYCLOVIR SODIUM. [Concomitant]
     Active Substance: ACYCLOVIR SODIUM
     Indication: PRODUCT USED FOR UNKNOWN INDICATION
     Route: 050
  12. AMPYRA [Concomitant]
     Active Substance: DALFAMPRIDINE
     Route: 050
  13. PROVIGIL [Concomitant]
     Active Substance: MODAFINIL
     Indication: PRODUCT USED FOR UNKNOWN INDICATION
     Route: 050
  14. VENLAFAXINE HCL [Concomitant]
     Active Substance: VENLAFAXINE HYDROCHLORIDE
     Indication: PRODUCT USED FOR UNKNOWN INDICATION
     Route: 050
  15. AMPYRA [Concomitant]
     Active Substance: DALFAMPRIDINE
     Route: 050
     Dates: start: 20150827
  16. TIZANIDINE. [Concomitant]
     Active Substance: TIZANIDINE
     Indication: PRODUCT USED FOR UNKNOWN INDICATION
     Route: 050
  17. DIAZEPAM. [Concomitant]
     Active Substance: DIAZEPAM
     Indication: PRODUCT USED FOR UNKNOWN INDICATION
     Route: 050

REACTIONS (13)
  - Deafness transitory [Unknown]
  - Cognitive disorder [Not Recovered/Not Resolved]
  - Mobility decreased [Not Recovered/Not Resolved]
  - Tinnitus [Unknown]
  - Eye contusion [Unknown]
  - Fall [Recovered/Resolved]
  - Depressed mood [Recovered/Resolved]
  - Muscle spasticity [Not Recovered/Not Resolved]
  - Muscular weakness [Not Recovered/Not Resolved]
  - Multiple sclerosis relapse [Not Recovered/Not Resolved]
  - Dizziness [Not Recovered/Not Resolved]
  - Bronchitis [Unknown]
  - Fatigue [Not Recovered/Not Resolved]

NARRATIVE: CASE EVENT DATE: 201611
